FAERS Safety Report 7072860-X (Version None)
Quarter: 2010Q4

REPORT INFORMATION
  Report Type: 
  Country: None (occurrence: None)
  Receive Date: 20101029
  Receipt Date: 20100507
  Transmission Date: 20110411
  Serious: No
  Sender: FDA-Public Use
  Company Number: A0851398A

PATIENT
  Sex: Female

DRUGS (6)
  1. ADVAIR DISKUS 100/50 [Suspect]
     Indication: ASTHMA
     Dosage: 1PUFF TWICE PER DAY
     Route: 055
     Dates: start: 20100204
  2. SINGULAIR [Concomitant]
  3. FOLIC ACID [Concomitant]
  4. ALENDRONATE SODIUM [Concomitant]
  5. BENAZEPRIL HYDROCHLORIDE [Concomitant]
  6. LOVASTATIN [Concomitant]

REACTIONS (2)
  - PRODUCT QUALITY ISSUE [None]
  - WHEEZING [None]
